FAERS Safety Report 5501818-4 (Version None)
Quarter: 2007Q4

REPORT INFORMATION
  Report Type: 
  Country: None (occurrence: None)
  Receive Date: 20071018
  Receipt Date: 20070820
  Transmission Date: 20080405
  Serious: Yes (Other)
  Sender: FDA-Public Use
  Company Number: PHEH2007US11456

PATIENT
  Age: 78 Year
  Sex: Female

DRUGS (1)
  1. EXFORGE [Suspect]
     Dosage: 5MG AMLODIPINE/320MG VALSARTAN
     Dates: start: 20070627

REACTIONS (1)
  - CARDIAC FAILURE [None]
